FAERS Safety Report 5264911-X (Version None)
Quarter: 2007Q1

REPORT INFORMATION
  Report Type: 
  Country: None (occurrence: None)
  Receive Date: 20070314
  Receipt Date: 20070302
  Transmission Date: 20070707
  Serious: Yes (Hospitalization)
  Sender: FDA-Public Use
  Company Number: GB-AMGEN-UK213730

PATIENT
  Sex: Female
  Weight: 60.6 kg

DRUGS (8)
  1. NEULASTA [Suspect]
     Route: 065
     Dates: start: 20061108
  2. EPIRUBICIN [Suspect]
     Route: 065
     Dates: start: 20061108
  3. CYCLOPHOSPHAMIDE [Suspect]
     Route: 065
     Dates: start: 20061108
  4. METHOTREXATE [Suspect]
     Route: 065
     Dates: start: 20061108
  5. FLUOROURACIL [Suspect]
     Route: 065
     Dates: start: 20061108
  6. CYCLIZINE [Concomitant]
     Route: 065
  7. DOCUSATE [Concomitant]
     Route: 065
  8. SENNA [Concomitant]
     Route: 065

REACTIONS (2)
  - PULMONARY FIBROSIS [None]
  - SEPSIS [None]
